FAERS Safety Report 18435904 (Version 1)
Quarter: 2020Q4

REPORT INFORMATION
  Report Type: Spontaneous
  Country: US (occurrence: US)
  Receive Date: 20201028
  Receipt Date: 20201028
  Transmission Date: 20210114
  Serious: Yes (Hospitalization)
  Sender: FDA-Public Use
  Company Number: US-FRESENIUS KABI-FK202011193

PATIENT
  Age: 69 Year
  Sex: Female

DRUGS (3)
  1. FLUOROURACIL (MANUFACTURER UNKNOWN) [Suspect]
     Active Substance: FLUOROURACIL
     Indication: CHOLANGIOCARCINOMA
     Dosage: LAST TREATED WITH CYCLE 7 DAY 1
     Route: 065
     Dates: end: 20201015
  2. CALCIUM FOLINATE [Suspect]
     Active Substance: LEUCOVORIN CALCIUM
     Indication: CHOLANGIOCARCINOMA
     Dosage: LAST TREATED WITH CYCLE 7 DAY 1
     Route: 065
     Dates: end: 20201015
  3. IRINOTECAN [Suspect]
     Active Substance: IRINOTECAN
     Indication: CHOLANGIOCARCINOMA
     Dosage: NANO LIPOSOMAL IRINOTECAN (LAST TREATED WITH CYCLE 7 DAY 1)
     Route: 065
     Dates: end: 20201015

REACTIONS (3)
  - Metabolic acidosis [Unknown]
  - Dehydration [Unknown]
  - Acute kidney injury [Unknown]

NARRATIVE: CASE EVENT DATE: 20201015
